FAERS Safety Report 21709689 (Version 1)
Quarter: 2022Q4

REPORT INFORMATION
  Report Type: Spontaneous
  Country: IT (occurrence: IT)
  Receive Date: 20221210
  Receipt Date: 20221210
  Transmission Date: 20230112
  Serious: Yes (Other)
  Sender: FDA-Public Use
  Company Number: None

PATIENT
  Age: 26 Year
  Sex: Male
  Weight: 65 kg

DRUGS (1)
  1. CYCLOSPORINE [Suspect]
     Active Substance: CYCLOSPORINE
     Indication: Psoriasis
     Dosage: 1CP 100MG AND 1CP 25MG FOR 2/DAY, UNIT DOSE: 250 MG, DURATION 3 MONTHS
     Route: 065
     Dates: start: 202203, end: 20220607

REACTIONS (3)
  - Skin fissures [Recovering/Resolving]
  - Eczema [Recovering/Resolving]
  - Therapy non-responder [Unknown]

NARRATIVE: CASE EVENT DATE: 20220607
